FAERS Safety Report 19177672 (Version 2)
Quarter: 2021Q2

REPORT INFORMATION
  Report Type: Spontaneous
  Country: US (occurrence: US)
  Receive Date: 20210426
  Receipt Date: 20210519
  Transmission Date: 20210717
  Serious: No
  Sender: FDA-Public Use
  Company Number: US-GLAXOSMITHKLINE-US2021088033

PATIENT
  Age: 60 Year
  Sex: Female

DRUGS (1)
  1. BREO ELLIPTA [Suspect]
     Active Substance: FLUTICASONE FUROATE\VILANTEROL TRIFENATATE
     Indication: COVID-19
     Dosage: 1 PUFF(S), 1D, 200/25 MCG.
     Route: 055
     Dates: start: 20210417

REACTIONS (5)
  - Off label use [Unknown]
  - Extra dose administered [Unknown]
  - Oropharyngeal pain [Not Recovered/Not Resolved]
  - Product complaint [Unknown]
  - Drug ineffective [Unknown]

NARRATIVE: CASE EVENT DATE: 20210419
